FAERS Safety Report 8433678-6 (Version None)
Quarter: 2012Q2

REPORT INFORMATION
  Report Type: 
  Country: None (occurrence: None)
  Receive Date: 20120323
  Receipt Date: 20110915
  Transmission Date: 20120825
  Serious: Yes (Hospitalization)
  Sender: FDA-Public Use
  Company Number: 163-21880-11070988

PATIENT
  Age: 79 Year
  Sex: Female

DRUGS (5)
  1. LOVENOX [Concomitant]
  2. PRILOSEC [Concomitant]
  3. METOPROLOL TARTRATE [Concomitant]
  4. REVLIMID [Suspect]
     Indication: MULTIPLE MYELOMA
     Dosage: 5 MG, 1 IN 1 D, PO
     Route: 048
     Dates: start: 20101201
  5. SIMVASTATIN [Concomitant]

REACTIONS (1)
  - BRONCHITIS [None]
